FAERS Safety Report 10930643 (Version 1)
Quarter: 2015Q1

REPORT INFORMATION
  Report Type: Spontaneous
  Country: US (occurrence: None)
  Receive Date: 20150318
  Receipt Date: 20150318
  Transmission Date: 20150721
  Serious: Yes (Hospitalization, Other)
  Sender: FDA-Public Use
  Company Number: None

PATIENT
  Age: 56 Year
  Sex: Female
  Weight: 51.26 kg

DRUGS (10)
  1. UCERIS [Concomitant]
     Active Substance: BUDESONIDE
  2. BONIVA [Suspect]
     Active Substance: IBANDRONATE SODIUM
     Indication: OSTEOPOROSIS
     Dosage: Q3M
     Route: 042
  3. RITUXIMAB [Concomitant]
     Active Substance: RITUXIMAB
  4. ALPRAZOLAM. [Concomitant]
     Active Substance: ALPRAZOLAM
  5. ASACOL [Concomitant]
     Active Substance: MESALAMINE
  6. PREMARIN [Concomitant]
     Active Substance: ESTROGENS, CONJUGATED
  7. RANITIDINE [Concomitant]
     Active Substance: RANITIDINE\RANITIDINE HYDROCHLORIDE
  8. LEXAPRO [Concomitant]
     Active Substance: ESCITALOPRAM OXALATE
  9. PREVACID [Concomitant]
     Active Substance: LANSOPRAZOLE
  10. HYDROXYZINE [Concomitant]
     Active Substance: HYDROXYZINE\HYDROXYZINE HYDROCHLORIDE

REACTIONS (6)
  - Rash [None]
  - Pruritus [None]
  - Rash erythematous [None]
  - Folliculitis [None]
  - Skin reaction [None]
  - Rash pruritic [None]

NARRATIVE: CASE EVENT DATE: 20141110
